FAERS Safety Report 10705103 (Version 1)
Quarter: 2015Q1

REPORT INFORMATION
  Report Type: Spontaneous
  Country: US (occurrence: US)
  Receive Date: 20150112
  Receipt Date: 20150112
  Transmission Date: 20150721
  Serious: Yes (Hospitalization)
  Sender: FDA-Public Use
  Company Number: US-TEVA-533053USA

PATIENT
  Age: 50 Year
  Sex: Female

DRUGS (1)
  1. COPAXONE [Suspect]
     Active Substance: GLATIRAMER ACETATE
     Indication: MULTIPLE SCLEROSIS
     Dosage: UNKNOWN FORM STRENGTH

REACTIONS (5)
  - Arthralgia [Unknown]
  - Glossodynia [Unknown]
  - Back pain [Unknown]
  - Hyperhidrosis [Unknown]
  - Cyst rupture [Unknown]

NARRATIVE: CASE EVENT DATE: 20140903
